FAERS Safety Report 5416290-2 (Version None)
Quarter: 2007Q3

REPORT INFORMATION
  Report Type: 
  Country: None (occurrence: None)
  Receive Date: 20070718
  Receipt Date: 20070301
  Transmission Date: 20080115
  Serious: Yes (Death, Other)
  Sender: FDA-Public Use
  Company Number: 2007016270

PATIENT
  Sex: Male

DRUGS (2)
  1. CELEBREX [Suspect]
     Dosage: ORAL
     Route: 048
     Dates: start: 20010827, end: 20050110
  2. VIOXX [Suspect]
     Dates: start: 19990819, end: 20040930

REACTIONS (1)
  - MYOCARDIAL INFARCTION [None]
